FAERS Safety Report 15872244 (Version 1)
Quarter: 2019Q1

REPORT INFORMATION
  Report Type: Other
  Country: US (occurrence: US)
  Receive Date: 20190126
  Receipt Date: 20190126
  Transmission Date: 20190417
  Serious: Yes (Other)
  Sender: FDA-Public Use
  Company Number: US-ACORDA-ACO_147867_2018

PATIENT
  Age: 53 Year
  Sex: Female

DRUGS (3)
  1. AMPYRA [Suspect]
     Active Substance: DALFAMPRIDINE
     Indication: MULTIPLE SCLEROSIS
     Dosage: 10 MG, Q 12 HRS
     Route: 048
     Dates: start: 20120505
  2. AMPYRA [Suspect]
     Active Substance: DALFAMPRIDINE
     Indication: GAIT DISTURBANCE
     Dosage: 10 MG, Q 12 HRS (DISPENSED ON 14-NOV-2016)
     Route: 048
  3. AMPYRA [Suspect]
     Active Substance: DALFAMPRIDINE
     Dosage: 10 MG, Q 12 HRS (DISPENSED ON 14-NOV-2016)
     Route: 048

REACTIONS (2)
  - Escherichia urinary tract infection [Unknown]
  - Urinary tract infection [Unknown]

NARRATIVE: CASE EVENT DATE: 20180305
